FAERS Safety Report 8188599-3 (Version None)
Quarter: 2012Q1

REPORT INFORMATION
  Report Type: 
  Country: None (occurrence: None)
  Receive Date: 20120306
  Receipt Date: 20120221
  Transmission Date: 20120608
  Serious: Yes (Other)
  Sender: FDA-Public Use
  Company Number: DE-FRI-1000028813

PATIENT
  Sex: Female

DRUGS (8)
  1. MIRTAZAPINE [Interacting]
     Dosage: 30 MG
     Route: 048
     Dates: start: 20110802, end: 20110817
  2. SEROQUEL XR [Interacting]
     Dosage: 100 MG
     Route: 048
     Dates: start: 20110806, end: 20110809
  3. ESCITALOPRAM [Suspect]
     Dosage: 10 MG
     Route: 048
     Dates: end: 20110814
  4. SEROQUEL XR [Interacting]
     Dosage: 200 MG
     Route: 048
     Dates: end: 20110805
  5. PANTOPRAZOLE [Concomitant]
     Dosage: 40 MG
  6. ESCITALOPRAM [Interacting]
     Dosage: 20 MG
     Route: 048
     Dates: start: 20110815, end: 20110824
  7. SEROQUEL XR [Interacting]
     Dosage: 300 MG
     Route: 048
     Dates: start: 20110811, end: 20110823
  8. SEROQUEL XR [Interacting]
     Dosage: 200 MG
     Route: 048
     Dates: start: 20110810, end: 20110810

REACTIONS (2)
  - URINARY RETENTION [None]
  - POTENTIATING DRUG INTERACTION [None]
